FAERS Safety Report 5266840-4 (Version None)
Quarter: 2007Q1

REPORT INFORMATION
  Report Type: 
  Country: None (occurrence: None)
  Receive Date: 20061213
  Receipt Date: 20040915
  Transmission Date: 20070707
  Serious: Yes (Hospitalization)
  Sender: FDA-Public Use
  Company Number: 2004UW19393

PATIENT
  Age: 63 Year
  Sex: Female
  Weight: 63.5036 kg

DRUGS (3)
  1. TAMOXIFEN CITRATE [Suspect]
     Indication: BREAST CANCER IN SITU
     Dosage: 20 MG DAILY PO
     Route: 048
     Dates: start: 20040312, end: 20040601
  2. ZYRTEC [Concomitant]
  3. ASTELIN [Concomitant]

REACTIONS (1)
  - PULMONARY EMBOLISM [None]
